FAERS Safety Report 7346796-0 (Version None)
Quarter: 2011Q1

REPORT INFORMATION
  Report Type: 
  Country: None (occurrence: None)
  Receive Date: 20110311
  Receipt Date: 20110301
  Transmission Date: 20110831
  Serious: Yes (Other)
  Sender: FDA-Public Use
  Company Number: US-JNJFOC-20110301271

PATIENT
  Sex: Female

DRUGS (1)
  1. REMICADE [Suspect]
     Indication: ILL-DEFINED DISORDER
     Route: 042

REACTIONS (2)
  - THROMBOSIS [None]
  - DRUG INEFFECTIVE [None]
